FAERS Safety Report 23210489 (Version 2)
Quarter: 2023Q4

REPORT INFORMATION
  Report Type: Spontaneous
  Country: BG (occurrence: BG)
  Receive Date: 20231121
  Receipt Date: 20231207
  Transmission Date: 20240110
  Serious: Yes (Other)
  Sender: FDA-Public Use
  Company Number: BG-002147023-NVSC2023BG246460

PATIENT
  Age: 74 Year
  Sex: Female
  Weight: 94 kg

DRUGS (3)
  1. PIQRAY [Suspect]
     Active Substance: ALPELISIB
     Indication: Breast cancer metastatic
     Dosage: 300 MG, QD
     Route: 048
     Dates: start: 20230912, end: 20230929
  2. FULVESTRANT [Concomitant]
     Active Substance: FULVESTRANT
     Indication: Breast cancer metastatic
     Dosage: 500 MG, Q4W
     Route: 030
     Dates: start: 20230912
  3. EGIRAMLON [Concomitant]
     Indication: Hypertension
     Dosage: 5 MG, BID
     Route: 065

REACTIONS (5)
  - Diarrhoea [Recovered/Resolved]
  - Frequent bowel movements [Unknown]
  - Rash pruritic [Recovered/Resolved]
  - Type 2 diabetes mellitus [Recovered/Resolved]
  - Dry mouth [Unknown]

NARRATIVE: CASE EVENT DATE: 20230901
